FAERS Safety Report 4850863-0 (Version None)
Quarter: 2005Q4

REPORT INFORMATION
  Report Type: 
  Country: None (occurrence: None)
  Receive Date: 20051208
  Receipt Date: 20051123
  Transmission Date: 20060501
  Serious: Yes (Hospitalization)
  Sender: FDA-Public Use
  Company Number: S05-GER-03552-01

PATIENT
  Age: 68 Year
  Sex: Male

DRUGS (11)
  1. ESCITALOPRAM OXALATE [Suspect]
     Indication: ANXIETY
     Dosage: 10 MG QD PO
     Route: 048
     Dates: start: 20050301, end: 20050701
  2. ESCITALOPRAM OXALATE [Suspect]
     Indication: DEPRESSION
     Dosage: 10 MG QD PO
     Route: 048
     Dates: start: 20050301, end: 20050701
  3. ESCITALOPRAM OXALATE [Suspect]
     Indication: PANIC DISORDER
     Dosage: 10 MG QD PO
     Route: 048
     Dates: start: 20050301, end: 20050701
  4. EDRONAX (REOXETINE) [Concomitant]
  5. DIGOXIN [Concomitant]
  6. GLUCOPHAGE (METFORMIN HYDROCHLORIDE) (METFORMIN) [Concomitant]
  7. DOXEPIN HCL [Concomitant]
  8. APROVEL (IRBESARTAN) [Concomitant]
  9. AQUAPHOR TABLET (XIPAMIDE) [Concomitant]
  10. ASPIRIN [Concomitant]
  11. CLORAZEPATE DIPOTASSIUM [Concomitant]

REACTIONS (5)
  - CYTOMEGALOVIRUS INFECTION [None]
  - DECREASED APPETITE [None]
  - EPSTEIN-BARR VIRUS INFECTION [None]
  - HEPATITIS TOXIC [None]
  - JAUNDICE [None]
